FAERS Safety Report 19052215 (Version 4)
Quarter: 2021Q2

REPORT INFORMATION
  Report Type: Spontaneous
  Country: US (occurrence: US)
  Receive Date: 20210324
  Receipt Date: 20210623
  Transmission Date: 20210717
  Serious: No
  Sender: FDA-Public Use
  Company Number: US-BIOGEN-2021BI00992938

PATIENT
  Sex: Female

DRUGS (2)
  1. TYSABRI [Suspect]
     Active Substance: NATALIZUMAB
     Indication: MULTIPLE SCLEROSIS
     Route: 042
  2. TYSABRI [Suspect]
     Active Substance: NATALIZUMAB
     Route: 042
     Dates: start: 20151002, end: 20180611

REACTIONS (6)
  - Stress [Unknown]
  - General physical health deterioration [Unknown]
  - Illness [Unknown]
  - Wound [Recovered/Resolved]
  - Multiple sclerosis [Unknown]
  - Pyrexia [Unknown]
